FAERS Safety Report 13692587 (Version 1)
Quarter: 2017Q2

REPORT INFORMATION
  Report Type: Spontaneous
  Country: US (occurrence: US)
  Receive Date: 20170627
  Receipt Date: 20170627
  Transmission Date: 20170830
  Serious: No
  Sender: FDA-Public Use
  Company Number: US-PFIZER INC-2017273381

PATIENT
  Sex: Female

DRUGS (1)
  1. PREMARIN [Suspect]
     Active Substance: ESTROGENS, CONJUGATED
     Dosage: UNK, A QUARTER OF APPLICATOR ON MONDAYS
     Dates: start: 2002

REACTIONS (3)
  - Expired product administered [Unknown]
  - Vaginal haemorrhage [Recovered/Resolved]
  - Atrophic vulvovaginitis [Unknown]
